FAERS Safety Report 4553303-4 (Version None)
Quarter: 2005Q1

REPORT INFORMATION
  Report Type: 
  Country: None (occurrence: None)
  Receive Date: 20050112
  Receipt Date: 20050103
  Transmission Date: 20050727
  Serious: Yes (Hospitalization)
  Sender: FDA-Public Use
  Company Number: 2005PK00038

PATIENT
  Age: 37 Year
  Sex: Male
  Weight: 71 kg

DRUGS (6)
  1. GEFITINIB [Suspect]
     Indication: NON-SMALL CELL LUNG CANCER
     Dosage: 250 MG DAILY PO
     Route: 048
     Dates: start: 20041213, end: 20050103
  2. RADIOTHERAPY [Suspect]
     Dosage: 17 GY
  3. IBUHEXAL [Concomitant]
  4. LISIGAMMA [Concomitant]
  5. RIFUN [Concomitant]
  6. TEPILTA [Concomitant]

REACTIONS (7)
  - C-REACTIVE PROTEIN INCREASED [None]
  - COUGH [None]
  - LUNG INFILTRATION [None]
  - PERFORMANCE STATUS DECREASED [None]
  - PYREXIA [None]
  - WEIGHT DECREASED [None]
  - WHITE BLOOD CELL COUNT INCREASED [None]
